FAERS Safety Report 8966291 (Version 1)
Quarter: 2012Q4

REPORT INFORMATION
  Report Type: 
  Country: ES (occurrence: ES)
  Receive Date: 20121217
  Receipt Date: 20121217
  Transmission Date: 20130627
  Serious: Yes (Other)
  Sender: FDA-Public Use
  Company Number: ES-NAPPMUNDI-GBR-2012-0012339

PATIENT
  Age: 40 Year
  Sex: Male

DRUGS (3)
  1. TARGIN 40MG/20MG RETARDTABLETTEN [Suspect]
     Indication: RADICULITIS
     Dosage: 2 DF, daily
     Route: 048
     Dates: start: 201209
  2. HYDROMORPHONE HCL [Suspect]
     Indication: BACK PAIN
     Dosage: 24 mg, daily
     Route: 048
     Dates: start: 201107, end: 201209
  3. TRYPTIZOL /00002202/ [Suspect]
     Indication: RADICULITIS
     Dosage: 10 mg, daily
     Route: 048
     Dates: start: 201209

REACTIONS (1)
  - Erectile dysfunction [Not Recovered/Not Resolved]
